FAERS Safety Report 11222961 (Version 1)
Quarter: 2015Q2

REPORT INFORMATION
  Report Type: Spontaneous
  Country: GB (occurrence: GB)
  Receive Date: 20150626
  Receipt Date: 20150626
  Transmission Date: 20150821
  Serious: Yes (Other)
  Sender: FDA-Public Use
  Company Number: GB-BAXALTA-2015BAX032893

PATIENT
  Age: 22 Year
  Sex: Male

DRUGS (1)
  1. SUBCUVIA [Suspect]
     Active Substance: HUMAN IMMUNOGLOBULIN G
     Indication: PRODUCT USED FOR UNKNOWN INDICATION
     Dosage: 40 ML
     Route: 058
     Dates: start: 20130522

REACTIONS (2)
  - Gastric infection [Recovered/Resolved]
  - Drug dose omission [Recovered/Resolved]
